FAERS Safety Report 14990055 (Version 1)
Quarter: 2018Q2

REPORT INFORMATION
  Report Type: Spontaneous
  Country: US (occurrence: US)
  Receive Date: 20180520
  Receipt Date: 20180520
  Transmission Date: 20180711
  Serious: Yes (Other)
  Sender: FDA-Public Use
  Company Number: None

PATIENT
  Age: 26 Year
  Sex: Female

DRUGS (2)
  1. SERTRALINE [Suspect]
     Active Substance: SERTRALINE HYDROCHLORIDE
     Indication: DEPRESSION
     Route: 048
     Dates: start: 20090801, end: 20170501
  2. SERTRALINE [Suspect]
     Active Substance: SERTRALINE HYDROCHLORIDE
     Indication: SOCIAL ANXIETY DISORDER
     Route: 048
     Dates: start: 20090801, end: 20170501

REACTIONS (4)
  - Orgasm abnormal [None]
  - Anorgasmia [None]
  - Sexual dysfunction [None]
  - Female orgasmic disorder [None]

NARRATIVE: CASE EVENT DATE: 20090801
